FAERS Safety Report 13737634 (Version 2)
Quarter: 2018Q2

REPORT INFORMATION
  Report Type: Spontaneous
  Country: US (occurrence: US)
  Receive Date: 20170710
  Receipt Date: 20180627
  Transmission Date: 20180711
  Serious: Yes (Other)
  Sender: FDA-Public Use
  Company Number: US-SAOL THERAPEUTICS-2016SAO00218

PATIENT
  Age: 43 Year
  Sex: Female

DRUGS (6)
  1. LIORESAL [Suspect]
     Active Substance: BACLOFEN
     Dosage: 330 ?G, \DAY
     Route: 037
  2. LIORESAL [Suspect]
     Active Substance: BACLOFEN
     Dosage: 315 ?G, \DAY
     Route: 037
  3. LIORESAL [Suspect]
     Active Substance: BACLOFEN
     Indication: MUSCLE SPASTICITY
     Dosage: 195 ?G, \DAY
     Route: 037
     Dates: start: 20160503, end: 20160613
  4. LIORESAL [Suspect]
     Active Substance: BACLOFEN
     Indication: MUSCLE SPASTICITY
     Dosage: 182 ?G, \DAY
     Route: 037
     Dates: start: 20160613
  5. ZOLOFT [Concomitant]
     Active Substance: SERTRALINE HYDROCHLORIDE
     Dosage: 100 MG, 1X/DAY
  6. LIORESAL [Suspect]
     Active Substance: BACLOFEN
     Dosage: 159 ?G, \DAY

REACTIONS (3)
  - Muscle spasticity [Unknown]
  - Hypotonia [Unknown]
  - Therapy non-responder [Recovered/Resolved]

NARRATIVE: CASE EVENT DATE: 20140303
